FAERS Safety Report 7948705-X (Version None)
Quarter: 2011Q4

REPORT INFORMATION
  Report Type: 
  Country: None (occurrence: None)
  Receive Date: 20111130
  Receipt Date: 20111130
  Transmission Date: 20120403
  Serious: Yes (Hospitalization, Other)
  Sender: FDA-Public Use
  Company Number: None

PATIENT
  Sex: Female
  Weight: 102.05 kg

DRUGS (1)
  1. ULORIC [Suspect]
     Indication: GOUT
     Dosage: 40MG
     Route: 048
     Dates: start: 20110120, end: 20111011

REACTIONS (3)
  - MYOCARDIAL INFARCTION [None]
  - RASH [None]
  - DYSPNOEA [None]
